FAERS Safety Report 24200377 (Version 1)
Quarter: 2024Q3

REPORT INFORMATION
  Report Type: Spontaneous
  Country: US (occurrence: None)
  Receive Date: 20240809
  Receipt Date: 20240809
  Transmission Date: 20241016
  Serious: No
  Sender: Public
  Company Number: None

PATIENT
  Sex: Female

DRUGS (22)
  1. VIGABATRIN [Suspect]
     Active Substance: VIGABATRIN
     Indication: Cerebral palsy
     Dosage: FREQUENCY : TWICE A DAY;?OTHER ROUTE : G-TUBE;?
     Route: 050
  2. BUDESONIDE [Concomitant]
     Active Substance: BUDESONIDE
  3. LEVALBUTEROL HYDROCHLORIDE [Concomitant]
     Active Substance: LEVALBUTEROL HYDROCHLORIDE
  4. PULMICORT TURBUHALER [Concomitant]
     Active Substance: BUDESONIDE
  5. PHENOBARBITAL [Concomitant]
     Active Substance: PHENOBARBITAL
  6. SENNA [Concomitant]
     Active Substance: SENNA LEAF\SENNOSIDES\SENNOSIDES A AND B
  7. ERYTHROMYCIN [Concomitant]
     Active Substance: ERYTHROMYCIN
  8. SABRIL [Concomitant]
     Active Substance: VIGABATRIN
  9. PEG 3350 [Concomitant]
     Active Substance: POLYETHYLENE GLYCOL 3350
  10. NYSTATIN [Concomitant]
     Active Substance: NYSTATIN
  11. SODIUM CHLORIDE [Concomitant]
     Active Substance: SODIUM CHLORIDE
  12. LACTULOSE [Concomitant]
     Active Substance: LACTULOSE
  13. DIAZEPAM [Concomitant]
     Active Substance: DIAZEPAM
  14. FAMOTIDINE [Concomitant]
     Active Substance: FAMOTIDINE
  15. MUPIROCIN [Concomitant]
     Active Substance: MUPIROCIN
  16. IPRATROPIUM BROMIDE [Concomitant]
     Active Substance: IPRATROPIUM BROMIDE\IPRATROPIUM BROMIDE ANHYDROUS
  17. VITAMIN D3 [Concomitant]
     Active Substance: CHOLECALCIFEROL
  18. GABAPENTIN [Concomitant]
     Active Substance: GABAPENTIN
  19. CLOBAZAM [Concomitant]
     Active Substance: CLOBAZAM
  20. SYNAGIS [Concomitant]
     Active Substance: PALIVIZUMAB
  21. CUVPOSA [Concomitant]
     Active Substance: GLYCOPYRROLATE
  22. VITAMINS [Concomitant]
     Active Substance: VITAMINS

REACTIONS (1)
  - Off label use [None]
